FAERS Safety Report 9049617 (Version 2)
Quarter: 2013Q2

REPORT INFORMATION
  Report Type: Spontaneous
  Country: US (occurrence: US)
  Receive Date: 20130205
  Receipt Date: 20130403
  Transmission Date: 20140414
  Serious: Yes (Hospitalization, Other)
  Sender: FDA-Public Use
  Company Number: US-ALEXION-A201300171

PATIENT
  Age: 41 Year
  Sex: Female
  Weight: 103 kg

DRUGS (36)
  1. SOLIRIS 300MG [Suspect]
     Indication: HAEMOLYTIC URAEMIC SYNDROME
     Dosage: 1200 MG, Q2W
     Route: 042
  2. COUMADIN [Concomitant]
     Indication: THROMBOSIS
     Dosage: 10 MG, QD
     Route: 048
  3. CARVEDILOL [Concomitant]
     Indication: HYPERTENSION
     Dosage: 25 MG, BID
     Route: 048
  4. HYDROMORPHONE [Concomitant]
     Indication: PAIN
     Dosage: 8 MG, Q3H PRN
     Route: 048
  5. ONDANSETRON [Concomitant]
     Dosage: 4 MG, QID PRN
     Route: 048
  6. RENVELA [Concomitant]
     Dosage: 500 MG, TID
     Route: 048
  7. ACETAMINOPHEN [Concomitant]
     Dosage: 1000 MG, BID
     Route: 048
  8. ALBUTEROL [Concomitant]
     Indication: WHEEZING
     Dosage: 1 PUFF 90 ?G, TID
  9. FLUTICASONE [Concomitant]
     Indication: DYSPNOEA
     Dosage: 2 SPRAYS 50 ?G, QD
     Route: 045
  10. FLUTICASONE [Concomitant]
     Indication: RESPIRATORY DISORDER
  11. NEXIUM [Concomitant]
     Indication: VISUAL ACUITY REDUCED
     Dosage: 40 MG, QD
     Route: 048
  12. ESTRADIOL [Concomitant]
     Dosage: 0.075 MG, QD I PATCH QW
     Route: 048
  13. LACTULOSE [Concomitant]
     Dosage: 10GM/15M, 30 ML QDL
     Route: 048
  14. FENTANYL [Concomitant]
     Dosage: 100MCG/HR, TID, 2 PATCHES Q 72H
     Route: 062
  15. HYDROXYZINE [Concomitant]
     Indication: PRURITUS
     Dosage: PRN10 MG, TID
     Route: 048
  16. GABAPENTIN [Concomitant]
     Dosage: 100 MG, BID
     Route: 048
  17. NYSTATIN [Concomitant]
     Dosage: 1 APPLICATION, QID
     Route: 061
  18. CINACALCET [Concomitant]
     Dosage: 30 MG, QD
     Route: 048
  19. ROPINIROLE [Concomitant]
     Dosage: 0.5 MG, TID
     Route: 048
  20. PHENYTOIN SODIUM EXTENDED [Concomitant]
     Indication: INTERVERTEBRAL DISC DISPLACEMENT
     Dosage: 200 MG, BID
     Route: 048
  21. PHENYTOIN SODIUM EXTENDED [Concomitant]
     Indication: INTERVERTEBRAL DISC DEGENERATION
  22. PHENYTOIN SODIUM EXTENDED [Concomitant]
     Indication: PAIN IN EXTREMITY
  23. PHENYTOIN SODIUM EXTENDED [Concomitant]
     Indication: PARAESTHESIA
  24. PHENYTOIN SODIUM EXTENDED [Concomitant]
     Indication: BACK PAIN
  25. POLYETHYLENE GLYCOL [Concomitant]
     Dosage: 1 DFPACKET, QD
     Route: 048
  26. SENNA [Concomitant]
     Dosage: 8.6 MG, BID
     Route: 048
  27. DOCUSATE [Concomitant]
     Dosage: 100 MG, BID
     Route: 048
  28. LIPITOR [Concomitant]
     Indication: TYPE V HYPERLIPIDAEMIA
     Dosage: 20 MG, QD
     Route: 048
  29. LEVOTHYROXINE [Concomitant]
     Indication: HYPOTHYROIDISM
     Dosage: 100 ?G, QD
     Route: 048
  30. CLOBETASOL [Concomitant]
     Indication: ECZEMA
     Dosage: UNK, BID
     Route: 061
  31. DIVALPROEX [Concomitant]
     Dosage: 500 MG, BID
     Route: 048
  32. FENTANYL CITRATE [Concomitant]
     Indication: INTERVERTEBRAL DISC DEGENERATION
     Dosage: 400 ?G, QID PRN
     Route: 002
  33. FENTANYL CITRATE [Concomitant]
     Indication: PAIN
  34. RENAL [Concomitant]
     Indication: VISUAL ACUITY REDUCED
     Dosage: UNK, QD
     Route: 048
  35. PROMETHAZINE [Concomitant]
     Dosage: 25 MG, UNK
     Route: 048
  36. PROCHLORPERAZINE [Concomitant]
     Dosage: 10 MG, UNK
     Route: 048

REACTIONS (5)
  - Blood pressure increased [Recovered/Resolved]
  - Hypervolaemia [Recovering/Resolving]
  - Axillary vein thrombosis [Unknown]
  - Dyspnoea [Recovering/Resolving]
  - Headache [Unknown]
